FAERS Safety Report 9138169 (Version 3)
Quarter: 2013Q2

REPORT INFORMATION
  Report Type: Report from Study
  Country: BR (occurrence: BR)
  Receive Date: 20130304
  Receipt Date: 20130617
  Transmission Date: 20140414
  Serious: Yes (Hospitalization, Other)
  Sender: FDA-Public Use
  Company Number: BR-ABBOTT-13P-020-1055360-00

PATIENT
  Age: 50 Year
  Sex: Male
  Weight: 76 kg

DRUGS (3)
  1. HUMIRA [Suspect]
     Indication: ANKYLOSING SPONDYLITIS
     Route: 058
     Dates: start: 201103, end: 201205
  2. HUMIRA [Suspect]
  3. PROPATYLNITRATE [Concomitant]
     Indication: CHEST PAIN
     Route: 048
     Dates: start: 201212

REACTIONS (7)
  - Venous occlusion [Recovering/Resolving]
  - Renal failure [Recovered/Resolved]
  - Neck pain [Unknown]
  - Bone pain [Unknown]
  - Chest pain [Unknown]
  - Venous occlusion [Not Recovered/Not Resolved]
  - Renal cyst [Not Recovered/Not Resolved]
